FAERS Safety Report 5921350-3 (Version None)
Quarter: 2008Q4

REPORT INFORMATION
  Report Type: 
  Country: None (occurrence: None)
  Receive Date: 20081014
  Receipt Date: 20081002
  Transmission Date: 20090506
  Serious: Yes (Other)
  Sender: FDA-Public Use
  Company Number: ENTC2008-0317

PATIENT
  Age: 75 Year
  Sex: Male

DRUGS (3)
  1. STALEVO 100 [Suspect]
     Dates: start: 20060101, end: 20060101
  2. KARDEGIC [Suspect]
  3. PLAVIX [Suspect]

REACTIONS (1)
  - EPISTAXIS [None]
